FAERS Safety Report 18762684 (Version 1)
Quarter: 2021Q1

REPORT INFORMATION
  Report Type: Spontaneous
  Country: US (occurrence: US)
  Receive Date: 20210119
  Receipt Date: 20210119
  Transmission Date: 20210419
  Serious: Yes (Hospitalization)
  Sender: FDA-Public Use
  Company Number: None

PATIENT
  Age: 30 Year
  Sex: Male

DRUGS (8)
  1. BUPROPN HCL XL [Concomitant]
  2. HUMIRA [Suspect]
     Active Substance: ADALIMUMAB
     Indication: CROHN^S DISEASE
     Dosage: ?          OTHER STRENGTH:40MG/0. ML ;?
     Route: 058
     Dates: start: 20200724
  3. CIPROFLOXACIN. [Concomitant]
     Active Substance: CIPROFLOXACIN
  4. METHOTREXATE. [Concomitant]
     Active Substance: METHOTREXATE
  5. TREXALL [Concomitant]
     Active Substance: METHOTREXATE SODIUM
  6. AMOX/K CLAV [Concomitant]
     Active Substance: AMOXICILLIN\CLAVULANATE POTASSIUM
  7. FOLIC ACID. [Concomitant]
     Active Substance: FOLIC ACID
  8. BUSPIRONE [Concomitant]
     Active Substance: BUSPIRONE HYDROCHLORIDE

REACTIONS (3)
  - Therapy interrupted [None]
  - Condition aggravated [None]
  - Surgery [None]

NARRATIVE: CASE EVENT DATE: 20201224
